FAERS Safety Report 9795280 (Version 1)
Quarter: 2014Q1

REPORT INFORMATION
  Report Type: Report from Study
  Country: DE (occurrence: DE)
  Receive Date: 20140103
  Receipt Date: 20140103
  Transmission Date: 20141002
  Serious: Yes (Other)
  Sender: FDA-Public Use
  Company Number: DE-ROCHE-1328452

PATIENT
  Age: 61 Year
  Sex: 0

DRUGS (8)
  1. GANCICLOVIR [Suspect]
     Indication: CYTOMEGALOVIRUS INFECTION
     Dosage: 2X410 MG
     Route: 065
  2. GANCICLOVIR [Suspect]
     Dosage: 1X200MG
     Route: 065
  3. GANCICLOVIR [Suspect]
     Dosage: 1X1000 MG
     Route: 065
  4. GANCICLOVIR [Suspect]
     Dosage: 1X200MG
     Route: 065
  5. CIDOFOVIR [Suspect]
     Indication: CYTOMEGALOVIRUS INFECTION
     Route: 065
  6. FOSCARNET [Suspect]
     Indication: CYTOMEGALOVIRUS INFECTION
     Route: 065
  7. ACYCLOVIR [Suspect]
     Indication: ANTIVIRAL PROPHYLAXIS
     Route: 065
  8. CYCLOPHOSPHAMIDE [Concomitant]
     Dosage: DAY-3 UNTIL-2
     Route: 065

REACTIONS (1)
  - Drug resistance [Unknown]
